FAERS Safety Report 9050981 (Version 1)
Quarter: 2013Q1

REPORT INFORMATION
  Report Type: Spontaneous
  Country: FR (occurrence: FR)
  Receive Date: 20130205
  Receipt Date: 20130205
  Transmission Date: 20140127
  Serious: Yes (Hospitalization)
  Sender: FDA-Public Use
  Company Number: FR-B.I. PHARMACEUTICALS,INC./RIDGEFIELD-2013-FF-00284FF

PATIENT
  Sex: Female

DRUGS (7)
  1. PRADAXA [Suspect]
     Indication: CARDIOVASCULAR EVENT PROPHYLAXIS
     Dosage: 220 MG
     Route: 048
     Dates: start: 20121001, end: 20121011
  2. INEXIUM [Concomitant]
     Dosage: 20 MG
     Route: 048
  3. ALDACTONE [Concomitant]
     Dosage: 25 MG
     Route: 048
     Dates: start: 201210
  4. LEVOTHYROX [Concomitant]
     Dosage: 75 MCG
     Route: 048
  5. CERIS [Concomitant]
     Dosage: 20 MG
     Route: 048
  6. SPECIAFOLDINE [Concomitant]
     Dosage: 5 MG
     Route: 048
  7. TARDYFERON [Concomitant]
     Dosage: 80 MG
     Route: 048

REACTIONS (2)
  - Hepatocellular injury [Recovered/Resolved]
  - Jaundice [Recovered/Resolved]
